FAERS Safety Report 22392752 (Version 8)
Quarter: 2023Q4

REPORT INFORMATION
  Report Type: Report from Study
  Country: CO (occurrence: CO)
  Receive Date: 20230601
  Receipt Date: 20231002
  Transmission Date: 20240110
  Serious: Yes (Death, Hospitalization, Other)
  Sender: FDA-Public Use
  Company Number: CO-EXELIXIS-CABO-23064242

PATIENT
  Age: 21 Year
  Sex: Male
  Weight: 70 kg

DRUGS (14)
  1. CABOMETYX [Suspect]
     Active Substance: CABOZANTINIB S-MALATE
     Indication: Renal cell carcinoma
     Dosage: 60 MG, QD
     Route: 048
     Dates: start: 20230508, end: 20230524
  2. CABOMETYX [Suspect]
     Active Substance: CABOZANTINIB S-MALATE
     Dosage: 60 MG, QD
     Route: 048
     Dates: end: 20230602
  3. CABOMETYX [Suspect]
     Active Substance: CABOZANTINIB S-MALATE
     Dosage: 60 MG, QD
     Route: 048
     Dates: start: 20230713
  4. OMEPRAZOLE [Concomitant]
     Active Substance: OMEPRAZOLE
     Indication: Gastric mucosal lesion
     Dosage: 20 MG, QD
     Route: 048
     Dates: start: 2021
  5. DICLOFENAC [Concomitant]
     Active Substance: DICLOFENAC
     Indication: Pain management
     Dosage: 50 MG, TID
     Route: 048
  6. AMITRIPTYLINE [Concomitant]
     Active Substance: AMITRIPTYLINE
     Indication: Insomnia
     Dosage: 25 MG, QD
     Route: 048
     Dates: start: 2021
  7. POLYETHYLENE GLYCOL [Concomitant]
     Active Substance: POLYETHYLENE GLYCOL
     Indication: Laxative supportive care
     Dosage: 17 G, BID
     Route: 048
  8. AMPICILLIN SODIUM\SULBACTAM SODIUM [Concomitant]
     Active Substance: AMPICILLIN SODIUM\SULBACTAM SODIUM
     Indication: Pancreatic disorder
     Dosage: 0.3 GRAM EVERY 6 HOURS
     Route: 042
     Dates: start: 20230620, end: 20230623
  9. INSULIN LISPRO [Concomitant]
     Active Substance: INSULIN LISPRO
     Indication: Diabetes mellitus
     Dosage: 16 [IU], TID
     Route: 058
     Dates: start: 2021
  10. LOSARTAN [Concomitant]
     Active Substance: LOSARTAN
     Indication: Hypertension
     Dosage: 25 MG EVERY 24 HOURS
     Route: 048
  11. ACETAMINOPHEN [Concomitant]
     Active Substance: ACETAMINOPHEN
     Indication: Pain management
     Dosage: 1 G, TID
     Route: 048
     Dates: start: 2021
  12. HYDROMORPHONE [Concomitant]
     Active Substance: HYDROMORPHONE
     Indication: Pain management
     Dosage: 2.5 MG, Q4HR
     Route: 048
     Dates: start: 2021
  13. DEGLUDEC [Concomitant]
     Indication: Diabetes mellitus
     Dosage: 23 UI EVERY 24 HOURS
     Route: 058
     Dates: start: 2021
  14. ONDANSETRON [Concomitant]
     Active Substance: ONDANSETRON
     Indication: Nausea
     Dosage: 4 MG, TID
     Route: 048
     Dates: start: 2021

REACTIONS (11)
  - Jaundice [Recovered/Resolved with Sequelae]
  - Spinal pain [Recovering/Resolving]
  - Renal failure [Not Recovered/Not Resolved]
  - Sepsis [Not Recovered/Not Resolved]
  - Abdominal pain [Recovered/Resolved with Sequelae]
  - Pancreatitis [Recovered/Resolved with Sequelae]
  - Pancreatitis acute [Recovering/Resolving]
  - Abdominal pain upper [Recovering/Resolving]
  - Nausea [Recovering/Resolving]
  - Back pain [Recovered/Resolved]
  - Death [Fatal]

NARRATIVE: CASE EVENT DATE: 20230523
